FAERS Safety Report 14701827 (Version 1)
Quarter: 2018Q1

REPORT INFORMATION
  Report Type: Spontaneous
  Country: US (occurrence: US)
  Receive Date: 20180331
  Receipt Date: 20180331
  Transmission Date: 20180509
  Serious: No
  Sender: FDA-Public Use
  Company Number: US-JNJFOC-20180324026

PATIENT
  Sex: Female

DRUGS (2)
  1. ZYRTEC [Suspect]
     Active Substance: CETIRIZINE HYDROCHLORIDE
     Route: 065
  2. ZYRTEC [Suspect]
     Active Substance: CETIRIZINE HYDROCHLORIDE
     Indication: PRODUCT USED FOR UNKNOWN INDICATION
     Dosage: DAILY FOR 1 YEAR AND A HALF
     Route: 065

REACTIONS (6)
  - Urticaria [Unknown]
  - Pain of skin [Unknown]
  - Skin haemorrhage [Unknown]
  - Pruritus [Unknown]
  - Headache [Unknown]
  - Flushing [Unknown]
